FAERS Safety Report 5153520-9 (Version None)
Quarter: 2006Q4

REPORT INFORMATION
  Report Type: 
  Country: None (occurrence: None)
  Receive Date: 20061114
  Receipt Date: 20061030
  Transmission Date: 20070319
  Serious: Yes (Other)
  Sender: FDA-Public Use
  Company Number: 2006RR-04353

PATIENT
  Age: 67 Year
  Sex: Male

DRUGS (10)
  1. DIHYDROCODEINE COMPOUND [Suspect]
     Dosage: 120
  2. FLUOXETINE [Suspect]
     Indication: DEPRESSION
     Dosage: 20 MG, BID
  3. RIMONABANT (RIMONABANT) [Suspect]
     Indication: DIABETES MELLITUS
     Dosage: 20 MG, QID, ORAL
     Route: 048
     Dates: start: 20060722, end: 20060815
  4. ASPIRIN [Concomitant]
  5. GLICLAZIDE [Concomitant]
  6. METFORMIN HCL [Concomitant]
  7. PERINDOPRIL ERBUMINE [Concomitant]
  8. ROSIGLITAZONE [Concomitant]
  9. SIMVASTATIN [Concomitant]
  10. DILTIAZEM HCL [Concomitant]

REACTIONS (3)
  - DRUG WITHDRAWAL SYNDROME [None]
  - HALLUCINATIONS, MIXED [None]
  - PSYCHOTIC DISORDER [None]
